FAERS Safety Report 11909915 (Version 1)
Quarter: 2016Q1

REPORT INFORMATION
  Report Type: Spontaneous
  Country: US (occurrence: None)
  Receive Date: 20160111
  Receipt Date: 20160111
  Transmission Date: 20160526
  Serious: No
  Sender: FDA-Public Use
  Company Number: None

PATIENT
  Age: 42 Year
  Sex: Male

DRUGS (1)
  1. ENBREL [Suspect]
     Active Substance: ETANERCEPT
     Indication: RHEUMATOID ARTHRITIS
     Dosage: Q7DS  UNDER THE SKIN
     Dates: start: 20150929

REACTIONS (2)
  - Therapy cessation [None]
  - Tuberculosis [None]

NARRATIVE: CASE EVENT DATE: 2015
